FAERS Safety Report 25339834 (Version 1)
Quarter: 2025Q2

REPORT INFORMATION
  Report Type: Spontaneous
  Country: KR (occurrence: KR)
  Receive Date: 20250521
  Receipt Date: 20250521
  Transmission Date: 20250717
  Serious: Yes (Other)
  Sender: LEADING PHARMA
  Company Number: KR-LEADINGPHARMA-KR-2025LEALIT00103

PATIENT
  Age: 48 Year
  Sex: Female

DRUGS (4)
  1. LEUCOVORIN CALCIUM [Suspect]
     Active Substance: LEUCOVORIN CALCIUM
     Indication: Metastases to ovary
     Route: 065
  2. FLUOROURACIL SODIUM [Suspect]
     Active Substance: FLUOROURACIL SODIUM
     Indication: Metastases to ovary
     Route: 065
  3. OXALIPLATIN [Suspect]
     Active Substance: OXALIPLATIN
     Indication: Metastases to ovary
     Route: 065
  4. NIVOLUMAB [Suspect]
     Active Substance: NIVOLUMAB
     Indication: Metastases to ovary
     Route: 065

REACTIONS (3)
  - Optic neuropathy [Not Recovered/Not Resolved]
  - Disease recurrence [Not Recovered/Not Resolved]
  - Product use in unapproved indication [Unknown]
